FAERS Safety Report 4888418-4 (Version None)
Quarter: 2006Q1

REPORT INFORMATION
  Report Type: 
  Country: None (occurrence: None)
  Receive Date: 20060119
  Receipt Date: 20060106
  Transmission Date: 20060701
  Serious: Yes (Death)
  Sender: FDA-Public Use
  Company Number: US-2006-000300

PATIENT
  Age: 58 Year
  Sex: Male

DRUGS (1)
  1. BETASERON [Suspect]
     Indication: MULTIPLE SCLEROSIS
     Dosage: MIU, SUBCUTANEOUS
     Route: 058
     Dates: start: 19940225, end: 20050601

REACTIONS (1)
  - MYOCARDIAL INFARCTION [None]
